FAERS Safety Report 7906843-1 (Version None)
Quarter: 2011Q4

REPORT INFORMATION
  Report Type: 
  Country: None (occurrence: None)
  Receive Date: 20111110
  Receipt Date: 20110425
  Transmission Date: 20120403
  Serious: No
  Sender: FDA-Public Use
  Company Number: US-BAYER-2011-036780

PATIENT
  Sex: Female

DRUGS (2)
  1. NEXAVAR [Suspect]
     Indication: HEPATIC NEOPLASM MALIGNANT
     Dosage: 400 MG, BID
  2. NEXAVAR [Suspect]
     Dosage: 100 MG, BID

REACTIONS (2)
  - NAUSEA [None]
  - FATIGUE [None]
